FAERS Safety Report 4965866-5 (Version None)
Quarter: 2006Q2

REPORT INFORMATION
  Report Type: 
  Country: None (occurrence: None)
  Receive Date: 20060405
  Receipt Date: 20060405
  Transmission Date: 20061013
  Serious: Yes (Hospitalization)
  Sender: FDA-Public Use
  Company Number: None

PATIENT
  Age: 27 Year
  Sex: Female
  Weight: 65.7716 kg

DRUGS (1)
  1. FLAGYL [Suspect]
     Indication: ANTI-INFECTIVE THERAPY
     Dosage: 250 MG TID PO
     Route: 048
     Dates: start: 20060327, end: 20060331

REACTIONS (7)
  - DYSPNOEA [None]
  - EYE SWELLING [None]
  - PHARYNGEAL OEDEMA [None]
  - RASH [None]
  - SWOLLEN TONGUE [None]
  - THROAT IRRITATION [None]
  - TREATMENT NONCOMPLIANCE [None]
